FAERS Safety Report 5294858-4 (Version None)
Quarter: 2007Q2

REPORT INFORMATION
  Report Type: 
  Country: None (occurrence: None)
  Receive Date: 20070412
  Receipt Date: 20070409
  Transmission Date: 20071010
  Serious: Yes (Hospitalization)
  Sender: FDA-Public Use
  Company Number: JP-BRISTOL-MYERS SQUIBB COMPANY-13743604

PATIENT
  Age: 31 Year
  Sex: Male

DRUGS (3)
  1. BUTORPHANOL TARTRATE [Suspect]
     Indication: ANAESTHESIA
  2. MIDAZOLAM HCL [Suspect]
     Indication: ANAESTHESIA
  3. RANITIDINE [Suspect]
     Route: 048

REACTIONS (1)
  - ATELECTASIS [None]
